FAERS Safety Report 5033169-9 (Version None)
Quarter: 2006Q2

REPORT INFORMATION
  Report Type: 
  Country: None (occurrence: None)
  Receive Date: 20060620
  Receipt Date: 20060602
  Transmission Date: 20061013
  Serious: Yes (Hospitalization)
  Sender: FDA-Public Use
  Company Number: 2006RR-02533

PATIENT
  Age: 94 Year
  Sex: Female

DRUGS (8)
  1. ASPIRIN [Suspect]
     Indication: PROPHYLAXIS
     Dosage: 75 MG, QD, ORAL
     Route: 048
     Dates: end: 20060513
  2. IBUPROFEN [Suspect]
     Indication: ARTHRITIS
     Dosage: ORAL
     Route: 048
     Dates: start: 20060501, end: 20060501
  3. GASTROCOTE [Concomitant]
  4. ACETAMINOPHEN [Concomitant]
  5. AMITRIPTYLINE TABLET 10MG (AMITRIPTYLINE) [Concomitant]
  6. OMEPRAZOLE [Concomitant]
  7. BENDROFLUAZIDE (BENDROFLUMETHIAZIDE) UNKNOWN [Concomitant]
  8. TRAMADOL HYDROCHLORIDE (TRAMADOL HYDROCHLORIDE) CAPSULE [Concomitant]

REACTIONS (1)
  - HAEMATEMESIS [None]
